FAERS Safety Report 5119624-1 (Version None)
Quarter: 2006Q4

REPORT INFORMATION
  Report Type: 
  Country: None (occurrence: None)
  Receive Date: 20061003
  Receipt Date: 20060922
  Transmission Date: 20070319
  Serious: Yes (Hospitalization)
  Sender: FDA-Public Use
  Company Number: DE-GLAXOSMITHKLINE-B0439593A

PATIENT
  Sex: Female
  Weight: 73 kg

DRUGS (3)
  1. TOPOTECAN [Suspect]
     Indication: OVARIAN CANCER
     Dosage: 7MG WEEKLY
     Route: 042
  2. KEVATRIL [Concomitant]
     Dates: start: 20060829, end: 20060905
  3. FORTECORTIN [Concomitant]
     Dates: start: 20060829, end: 20060905

REACTIONS (1)
  - FALLOPIAN TUBE CANCER [None]
